FAERS Safety Report 9925567 (Version 1)
Quarter: 2014Q1

REPORT INFORMATION
  Report Type: Spontaneous
  Country: US (occurrence: None)
  Receive Date: 20140224
  Receipt Date: 20140224
  Transmission Date: 20141002
  Serious: Yes (Death)
  Sender: FDA-Public Use
  Company Number: NL01PV14.35187

PATIENT
  Age: 63 Year
  Sex: Male

DRUGS (8)
  1. ZOLPIDEM [Suspect]
     Route: 048
  2. DIAZEPAM (DIAZEPAM) [Suspect]
     Route: 048
  3. TRIAZOLAM (TRIAZOLAM) [Suspect]
     Route: 048
  4. TEMAZEPAM [Suspect]
     Route: 048
  5. FLURAZEPAM [Suspect]
     Route: 048
  6. ACETAMINOPHEN W/HYDROCODONE [Suspect]
     Route: 048
  7. ACETAMINOPHEN W/PROPOXYPHENE [Suspect]
     Route: 048
  8. NORTRIPTYLINE [Suspect]
     Route: 048

REACTIONS (3)
  - Completed suicide [None]
  - Exposure via ingestion [None]
  - Poisoning [None]
